FAERS Safety Report 7112921-X (Version None)
Quarter: 2010Q4

REPORT INFORMATION
  Report Type: 
  Country: None (occurrence: None)
  Receive Date: 20101119
  Receipt Date: 20100817
  Transmission Date: 20110411
  Serious: Yes (Other)
  Sender: FDA-Public Use
  Company Number: US-BRISTOL-MYERS SQUIBB COMPANY-15243132

PATIENT
  Age: 65 Year
  Sex: Male
  Weight: 113 kg

DRUGS (4)
  1. AVALIDE [Suspect]
     Dosage: 1 DF = 300/12.5MG
     Dates: start: 20100401, end: 20100601
  2. DILANTIN [Concomitant]
  3. TEGRETOL [Concomitant]
  4. BENICAR HCT [Concomitant]

REACTIONS (1)
  - MACULE [None]
